FAERS Safety Report 19595709 (Version 1)
Quarter: 2021Q3

REPORT INFORMATION
  Report Type: Report from Study
  Country: JP (occurrence: JP)
  Receive Date: 20210722
  Receipt Date: 20210722
  Transmission Date: 20211014
  Serious: Yes (Death)
  Sender: FDA-Public Use
  Company Number: JP-GILEAD-2019-0437909

PATIENT
  Sex: Female
  Weight: 58 kg

DRUGS (10)
  1. EURAX [Concomitant]
     Active Substance: CROTAMITON
     Indication: DISEASE COMPLICATION
     Dosage: UNK
     Route: 062
  2. SOFOSBUVIR W/VELPATASVIR [Suspect]
     Active Substance: SOFOSBUVIR\VELPATASVIR
     Indication: HEPATITIS C
  3. LAGNOS [Concomitant]
     Indication: HEPATIC CIRRHOSIS
     Dosage: UNK
     Route: 048
  4. SPIRONOLACTONE. [Concomitant]
     Active Substance: SPIRONOLACTONE
     Dosage: UNK
     Route: 048
     Dates: start: 20190423, end: 2019
  5. POLAPREZINC [Concomitant]
     Active Substance: POLAPREZINC
     Dosage: UNK
     Route: 048
  6. AMINOVACT [Concomitant]
     Active Substance: ISOLEUCINE\LEUCINE\VALINE
     Indication: HEPATIC CIRRHOSIS
     Dosage: UNK
     Route: 048
  7. SOFOSBUVIR W/VELPATASVIR [Suspect]
     Active Substance: SOFOSBUVIR\VELPATASVIR
     Indication: HEPATIC CIRRHOSIS
     Dosage: 1 DOSAGE FORM, QD
     Route: 048
     Dates: start: 20190320, end: 20190611
  8. AZILVA [Concomitant]
     Active Substance: AZILSARTAN KAMEDOXOMIL
     Indication: DISEASE COMPLICATION
     Dosage: UNK
     Route: 048
  9. FUROSEMIDE. [Concomitant]
     Active Substance: FUROSEMIDE
     Dosage: UNK
     Route: 048
     Dates: start: 20190423, end: 2019
  10. BENIDIPINE HYDROCHLORIDE [Concomitant]
     Active Substance: BENIDIPINE HYDROCHLORIDE
     Indication: DISEASE COMPLICATION
     Dosage: UNK
     Route: 048

REACTIONS (3)
  - Death [Fatal]
  - Ammonia increased [Recovering/Resolving]
  - Oedema peripheral [Recovered/Resolved]

NARRATIVE: CASE EVENT DATE: 20190423
